FAERS Safety Report 22537370 (Version 1)
Quarter: 2023Q2

REPORT INFORMATION
  Report Type: Spontaneous
  Country: US (occurrence: US)
  Receive Date: 20230608
  Receipt Date: 20230608
  Transmission Date: 20230722
  Serious: No
  Sender: FDA-Public Use
  Company Number: US-PFIZER INC-US-GBT-018509

PATIENT
  Age: 12 Year
  Sex: Male

DRUGS (2)
  1. OXBRYTA [Suspect]
     Active Substance: VOXELOTOR
     Dosage: 300 MG TABLETS FOR ORAL SUSPENSION
  2. OXBRYTA [Suspect]
     Active Substance: VOXELOTOR
     Dosage: 300MG TABLETS, 3 TABLETS DAILY

REACTIONS (1)
  - Increased appetite [Not Recovered/Not Resolved]
